FAERS Safety Report 14236788 (Version 1)
Quarter: 2017Q4

REPORT INFORMATION
  Report Type: Report from Study
  Country: US (occurrence: US)
  Receive Date: 20171129
  Receipt Date: 20171129
  Transmission Date: 20180321
  Serious: Yes (Hospitalization, Other)
  Sender: FDA-Public Use
  Company Number: US-ACTELION-A-NJ2017-163129

PATIENT
  Age: 54 Year
  Sex: Female
  Weight: 108.84 kg

DRUGS (1)
  1. VELETRI [Suspect]
     Active Substance: EPOPROSTENOL
     Indication: PULMONARY ARTERIAL HYPERTENSION
     Dosage: 43.5 NG/KG, PER MIN
     Route: 042

REACTIONS (1)
  - Deafness [Unknown]
